FAERS Safety Report 9679197 (Version 1)
Quarter: 2013Q4

REPORT INFORMATION
  Report Type: Spontaneous
  Country: BR (occurrence: BR)
  Receive Date: 20131108
  Receipt Date: 20131108
  Transmission Date: 20140711
  Serious: Yes (Other)
  Sender: FDA-Public Use
  Company Number: BR-ABBVIE-13P-020-1165010-00

PATIENT
  Sex: Female
  Weight: 162 kg

DRUGS (6)
  1. HUMIRA [Suspect]
     Indication: RHEUMATOID ARTHRITIS
     Route: 058
     Dates: start: 201008, end: 20130325
  2. HUMIRA [Suspect]
     Route: 058
     Dates: start: 20130424
  3. METHOTREXATE [Concomitant]
     Indication: RHEUMATOID ARTHRITIS
     Route: 048
  4. FOLIC ACID [Concomitant]
     Indication: PRODUCT USED FOR UNKNOWN INDICATION
     Route: 048
  5. PURAN T4 [Concomitant]
     Indication: HYPOTHYROIDISM
     Route: 048
     Dates: start: 1993
  6. NIMESULIDE [Concomitant]
     Indication: ARTHRITIS
     Dosage: 1 OR 2 TABLETS SPORADICALLY
     Route: 048

REACTIONS (1)
  - Tendon rupture [Unknown]
